FAERS Safety Report 7580409-8 (Version None)
Quarter: 2011Q2

REPORT INFORMATION
  Report Type: 
  Country: None (occurrence: None)
  Receive Date: 20110629
  Receipt Date: 20110622
  Transmission Date: 20111010
  Serious: Yes (Other)
  Sender: FDA-Public Use
  Company Number: FR-SANOFI-AVENTIS-2011SA011484

PATIENT
  Age: 34 Year
  Sex: Female
  Weight: 48 kg

DRUGS (2)
  1. LOVENOX [Suspect]
     Indication: DEEP VEIN THROMBOSIS
     Dosage: 1 TO 2 INJECTIONS DAILY
     Route: 058
     Dates: start: 20110101
  2. LOVENOX [Suspect]
     Route: 058
     Dates: end: 20110301

REACTIONS (2)
  - NEONATAL INFECTION [None]
  - DRUG EXPOSURE DURING PREGNANCY [None]
